FAERS Safety Report 21785887 (Version 2)
Quarter: 2022Q4

REPORT INFORMATION
  Report Type: Report from Study
  Country: US (occurrence: US)
  Receive Date: 20221227
  Receipt Date: 20221228
  Transmission Date: 20230113
  Serious: No
  Sender: FDA-Public Use
  Company Number: US-ABBVIE-4201023

PATIENT
  Sex: Female

DRUGS (2)
  1. SKYRIZI [Suspect]
     Active Substance: RISANKIZUMAB-RZAA
     Indication: Psoriasis
     Dosage: WEEK 04, THEN EVERY 12 WEEKS
     Route: 058
     Dates: start: 20221020
  2. SKYRIZI [Suspect]
     Active Substance: RISANKIZUMAB-RZAA
     Dosage: WEEK 00
     Route: 058
     Dates: start: 20220922, end: 20220922

REACTIONS (2)
  - Pruritus [Unknown]
  - Erythema [Not Recovered/Not Resolved]
